FAERS Safety Report 16669906 (Version 1)
Quarter: 2019Q3

REPORT INFORMATION
  Report Type: Spontaneous
  Country: US (occurrence: US)
  Receive Date: 20190620
  Receipt Date: 20190620
  Transmission Date: 20191004
  Serious: Yes (Hospitalization)
  Sender: FDA-Public Use
  Company Number: None

PATIENT
  Sex: Female

DRUGS (12)
  1. SILDENAFIL 20MG TAB [Suspect]
     Active Substance: SILDENAFIL
     Indication: PULMONARY ARTERIAL HYPERTENSION
     Dosage: ?          OTHER DOSE:1 T;?
     Route: 048
     Dates: start: 20180310
  2. MONTELUKAST TAB [Concomitant]
  3. POT CHLORIDE TAB [Concomitant]
  4. QVAR ABR [Concomitant]
  5. WARFARIN TAB [Concomitant]
  6. AVAR REDIHA SER [Concomitant]
  7. CLOBETASOL CRE [Concomitant]
  8. TYSTOP POW [Concomitant]
  9. MEGESTROL SUS [Concomitant]
  10. METOLAZONE TAB [Concomitant]
  11. MOMETASONIE SPR [Concomitant]
  12. TORSEMIDE TAB [Concomitant]

REACTIONS (3)
  - Product dose omission [None]
  - Rehabilitation therapy [None]
  - Fall [None]
